FAERS Safety Report 6150542-6 (Version None)
Quarter: 2009Q2

REPORT INFORMATION
  Report Type: 
  Country: None (occurrence: None)
  Receive Date: 20090407
  Receipt Date: 20090407
  Transmission Date: 20091009
  Serious: No
  Sender: FDA-Public Use
  Company Number: None

PATIENT
  Sex: Female
  Weight: 95.4 kg

DRUGS (3)
  1. BEVACIZUMAB [Suspect]
     Indication: LUNG CARCINOMA CELL TYPE UNSPECIFIED STAGE III
     Dosage: 1500 MG Q3W IV
     Route: 042
     Dates: start: 20070601, end: 20070901
  2. BEVACIZUMAB [Suspect]
     Indication: LUNG CARCINOMA CELL TYPE UNSPECIFIED STAGE III
     Dosage: 1500 MG Q3W IV
     Route: 042
     Dates: start: 20080301, end: 20080601
  3. BEVACIZUMAB [Suspect]
     Indication: LUNG CARCINOMA CELL TYPE UNSPECIFIED STAGE III
     Dosage: 1500 MG Q3W IV
     Route: 042
     Dates: start: 20081101, end: 20090201

REACTIONS (3)
  - HEADACHE [None]
  - INSOMNIA [None]
  - REVERSIBLE POSTERIOR LEUKOENCEPHALOPATHY SYNDROME [None]
